FAERS Safety Report 7717386-2 (Version None)
Quarter: 2011Q3

REPORT INFORMATION
  Report Type: 
  Country: None (occurrence: None)
  Receive Date: 20110823
  Receipt Date: 20110623
  Transmission Date: 20111222
  Serious: Yes (Hospitalization)
  Sender: FDA-Public Use
  Company Number: 20110617CINRY2064

PATIENT
  Age: 12 Year
  Sex: Female
  Weight: 45.3 kg

DRUGS (5)
  1. DILAUDID [Concomitant]
  2. CINRYZE [Suspect]
     Indication: HEREDITARY ANGIOEDEMA
     Dosage: (1000 UNIT, 1 IN 3 D), INTRAVENOUS
     Route: 042
     Dates: start: 20090424
  3. CINRYZE [Suspect]
     Indication: PROPHYLAXIS
     Dosage: (1000 UNIT, 1 IN 3 D), INTRAVENOUS
     Route: 042
     Dates: start: 20090424
  4. ZOFRAN [Concomitant]
  5. ACETAMINOPHEN [Concomitant]

REACTIONS (5)
  - SWELLING FACE [None]
  - HEREDITARY ANGIOEDEMA [None]
  - HEADACHE [None]
  - DECREASED APPETITE [None]
  - OFF LABEL USE [None]
